FAERS Safety Report 11871660 (Version 1)
Quarter: 2015Q4

REPORT INFORMATION
  Report Type: Spontaneous
  Country: GB (occurrence: GB)
  Receive Date: 20151228
  Receipt Date: 20151228
  Transmission Date: 20160305
  Serious: Yes (Other)
  Sender: FDA-Public Use
  Company Number: GB-TEVA-618750ACC

PATIENT
  Age: 18 Year
  Sex: Female
  Weight: 58 kg

DRUGS (7)
  1. NITROFURANTOIN. [Suspect]
     Active Substance: NITROFURANTOIN
     Dates: start: 20151207
  2. E45 [Concomitant]
     Active Substance: LANOLIN\LIGHT MINERAL OIL\PARAFFIN
     Dates: start: 20121204
  3. MOMETASONE [Concomitant]
     Active Substance: MOMETASONE
     Dosage: 1 DOSAGE FORMS DAILY; ONLY UP TO 3 DAY COURSES AT A TIME
     Dates: start: 20140930
  4. OILATUM [Concomitant]
     Dates: start: 20121204
  5. PIVMECILLINAM [Concomitant]
     Active Substance: PENICILLIN
     Dosage: 2 IMMEDIATELY THEN 1 TO BE TAKEN THREE TIMES DA...
     Dates: start: 20151207
  6. LANSOPRAZOLE. [Concomitant]
     Active Substance: LANSOPRAZOLE
     Dosage: 1 DOSAGE FORMS DAILY;
     Dates: start: 20151130
  7. TRIMETHOPRIM. [Concomitant]
     Active Substance: TRIMETHOPRIM
     Dosage: 2 DOSAGE FORMS DAILY;
     Dates: start: 20151130, end: 20151203

REACTIONS (1)
  - Blister [Not Recovered/Not Resolved]

NARRATIVE: CASE EVENT DATE: 20151207
